FAERS Safety Report 5932232-5 (Version None)
Quarter: 2008Q4

REPORT INFORMATION
  Report Type: 
  Country: None (occurrence: None)
  Receive Date: 20081028
  Receipt Date: 20081020
  Transmission Date: 20090506
  Serious: Yes (Other)
  Sender: FDA-Public Use
  Company Number: SK-BRISTOL-MYERS SQUIBB COMPANY-14337620

PATIENT
  Age: 31 Year
  Sex: Male

DRUGS (5)
  1. ABILIFY [Suspect]
     Indication: SCHIZOPHRENIA
     Dosage: TREATED WITH ABILIFY FOR MORE THAN 2 YEARS. LATEST TAKEN IN SEP-2008
     Route: 048
     Dates: start: 20061026
  2. ANAFRANIL [Suspect]
  3. ZAPONEX [Suspect]
  4. ALVENTA [Suspect]
  5. LEPONEX [Concomitant]
     Route: 048

REACTIONS (1)
  - HYPERSEXUALITY [None]
